FAERS Safety Report 6003100-8 (Version None)
Quarter: 2008Q4

REPORT INFORMATION
  Report Type: 
  Country: None (occurrence: None)
  Receive Date: 20081215
  Receipt Date: 20081215
  Transmission Date: 20090506
  Serious: Yes (Other)
  Sender: FDA-Public Use
  Company Number: None

PATIENT
  Age: 25 Year
  Sex: Male
  Weight: 60 kg

DRUGS (8)
  1. DEPAKOTE [Suspect]
     Indication: EPILEPSY
     Dosage: 500 MG TID 1000 MG HS
     Dates: start: 20081119
  2. TOPAMAX [Concomitant]
  3. INDERAL [Concomitant]
  4. ELAVIL [Concomitant]
  5. RITALIN [Concomitant]
  6. RANITIDINE [Concomitant]
  7. MOTRIN [Concomitant]
  8. MIGRANAL [Concomitant]

REACTIONS (1)
  - CONVULSION [None]
